FAERS Safety Report 6088896-1 (Version None)
Quarter: 2009Q1

REPORT INFORMATION
  Report Type: 
  Country: None (occurrence: None)
  Receive Date: 20090220
  Receipt Date: 20090220
  Transmission Date: 20090719
  Serious: Yes (Death, Hospitalization)
  Sender: FDA-Public Use
  Company Number: None

PATIENT
  Sex: Male
  Weight: 68.6 kg

DRUGS (9)
  1. TAXOTERE [Suspect]
     Dosage: 132 MG
  2. PREDNISONE [Suspect]
     Dosage: 100 MG
  3. AGGRENOX [Concomitant]
  4. CALCIUM [Concomitant]
  5. LUTEIN [Concomitant]
  6. SIMVASTATIN [Concomitant]
  7. THERAGRAN-M [Concomitant]
  8. TYLENOL (CAPLET) [Concomitant]
  9. WARFARIN SODIUM [Concomitant]

REACTIONS (6)
  - BLOOD GLUCOSE ABNORMAL [None]
  - INFARCTION [None]
  - LOBAR PNEUMONIA [None]
  - NEUTROPENIA [None]
  - PULMONARY EMBOLISM [None]
  - RESPIRATORY FAILURE [None]
